FAERS Safety Report 12282091 (Version 1)
Quarter: 2016Q2

REPORT INFORMATION
  Report Type: Spontaneous
  Country: US (occurrence: None)
  Receive Date: 20160418
  Receipt Date: 20160418
  Transmission Date: 20160815
  Serious: Yes (Death, Hospitalization, Other)
  Sender: FDA-Public Use
  Company Number: None

PATIENT
  Age: 80 Year
  Sex: Female
  Weight: 73.48 kg

DRUGS (1)
  1. SPRYCEL [Suspect]
     Active Substance: DASATINIB
     Indication: CHRONIC MYELOID LEUKAEMIA
     Route: 048

REACTIONS (6)
  - Decubitus ulcer [None]
  - Sepsis [None]
  - Pulmonary arterial hypertension [None]
  - Atrial fibrillation [None]
  - Pleural effusion [None]
  - Immobile [None]

NARRATIVE: CASE EVENT DATE: 20151101
